FAERS Safety Report 4754036-1 (Version None)
Quarter: 2005Q3

REPORT INFORMATION
  Report Type: 
  Country: None (occurrence: None)
  Receive Date: 20050826
  Receipt Date: 20050817
  Transmission Date: 20060218
  Serious: Yes (Death, Hospitalization, Other)
  Sender: FDA-Public Use
  Company Number: 163-20785-04070412

PATIENT
  Age: 61 Year
  Sex: Female

DRUGS (7)
  1. THALOMID [Suspect]
     Indication: MULTIPLE MYELOMA
     Dosage: 200 MG, DAILY, ORAL
     Route: 048
     Dates: start: 20040603, end: 20040714
  2. HYDROMORPHONE HCL [Concomitant]
  3. XANAX [Concomitant]
  4. FOLIC ACID [Concomitant]
  5. COMBIVENT [Concomitant]
  6. COZAAR [Concomitant]
  7. CLONIDINE [Concomitant]

REACTIONS (17)
  - ANAEMIA [None]
  - ARTERIOVENOUS GRAFT THROMBOSIS [None]
  - ASPIRATION [None]
  - ASTHENIA [None]
  - BACK PAIN [None]
  - BRONCHIAL OBSTRUCTION [None]
  - CHRONIC OBSTRUCTIVE PULMONARY DISEASE [None]
  - COLLAPSE OF LUNG [None]
  - DISEASE PROGRESSION [None]
  - HAEMODIALYSIS [None]
  - HUMERUS FRACTURE [None]
  - HYPERKALAEMIA [None]
  - LETHARGY [None]
  - PNEUMONIA ASPIRATION [None]
  - REFUSAL OF TREATMENT BY PATIENT [None]
  - RENAL FAILURE CHRONIC [None]
  - THROMBOCYTOPENIA [None]
